FAERS Safety Report 4962806-X (Version None)
Quarter: 2006Q2

REPORT INFORMATION
  Report Type: 
  Country: None (occurrence: None)
  Receive Date: 20060405
  Receipt Date: 20060310
  Transmission Date: 20061013
  Serious: Yes (Other)
  Sender: FDA-Public Use
  Company Number: CN-SANOFI-SYNTHELABO-A01200601906

PATIENT
  Age: 68 Year
  Sex: Male

DRUGS (10)
  1. PLAVIX [Suspect]
     Indication: THROMBOSIS PROPHYLAXIS
     Route: 048
     Dates: start: 20060222, end: 20060222
  2. PLAVIX [Suspect]
     Indication: CORONARY ANGIOPLASTY
     Route: 048
     Dates: start: 20060222, end: 20060222
  3. PLAVIX [Suspect]
     Indication: MYOCARDIAL INFARCTION
     Route: 048
     Dates: start: 20060222, end: 20060222
  4. PLAVIX [Suspect]
     Route: 048
     Dates: start: 20060223, end: 20060301
  5. PLAVIX [Suspect]
     Route: 048
     Dates: start: 20060302
  6. PLAVIX [Suspect]
     Route: 048
     Dates: start: 20060302
  7. PLAVIX [Suspect]
     Route: 048
     Dates: start: 20060302
  8. PLAVIX [Suspect]
     Route: 048
     Dates: start: 20060223, end: 20060301
  9. PLAVIX [Suspect]
     Route: 048
     Dates: start: 20060223, end: 20060301
  10. ASPIRIN [Suspect]
     Indication: THROMBOSIS PROPHYLAXIS
     Route: 048
     Dates: start: 20060222

REACTIONS (4)
  - ANAEMIA [None]
  - APLASIA PURE RED CELL [None]
  - CONDITION AGGRAVATED [None]
  - PRESCRIBED OVERDOSE [None]
